FAERS Safety Report 4881736-5 (Version None)
Quarter: 2006Q1

REPORT INFORMATION
  Report Type: 
  Country: None (occurrence: None)
  Receive Date: 20060116
  Receipt Date: 20051216
  Transmission Date: 20060701
  Serious: Yes (Congenital Anomaly)
  Sender: FDA-Public Use
  Company Number: JP-ROCHE-429491

PATIENT

DRUGS (2)
  1. RIVOTRIL [Suspect]
     Indication: DRUG USE FOR UNKNOWN INDICATION
     Route: 064
  2. TEGRETOL [Concomitant]
     Route: 064

REACTIONS (2)
  - CONGENITAL HAIR DISORDER [None]
  - DRUG EXPOSURE DURING PREGNANCY [None]
